FAERS Safety Report 4847417-9 (Version None)
Quarter: 2005Q4

REPORT INFORMATION
  Report Type: 
  Country: None (occurrence: None)
  Receive Date: 20051205
  Receipt Date: 20051123
  Transmission Date: 20060501
  Serious: Yes (Hospitalization)
  Sender: FDA-Public Use
  Company Number: TPA2005A01546

PATIENT
  Age: 68 Year
  Sex: Female
  Weight: 89.3586 kg

DRUGS (13)
  1. ACTOS [Suspect]
     Indication: DIABETES MELLITUS NON-INSULIN-DEPENDENT
     Dosage: 30  MG, 1 IN 1 D, PER ORAL
     Route: 048
     Dates: start: 20030101, end: 20040101
  2. ZYRTEC [Concomitant]
  3. PLAVIX [Concomitant]
  4. PREVACID [Concomitant]
  5. ZOCOR [Concomitant]
  6. COREG [Concomitant]
  7. IMDUR [Concomitant]
  8. LASIX [Concomitant]
  9. ASPIRIN [Concomitant]
  10. MAXAIR [Concomitant]
  11. FLOVENT [Concomitant]
  12. SPIRIVA (TIORTOPIUM) [Concomitant]
  13. XOPENEX [Concomitant]

REACTIONS (3)
  - CARDIAC FAILURE CONGESTIVE [None]
  - FLUID RETENTION [None]
  - WEIGHT INCREASED [None]
